FAERS Safety Report 20782177 (Version 1)
Quarter: 2022Q2

REPORT INFORMATION
  Report Type: Spontaneous
  Country: DE (occurrence: DE)
  Receive Date: 20220504
  Receipt Date: 20220504
  Transmission Date: 20220721
  Serious: Yes (Death, Other)
  Sender: FDA-Public Use
  Company Number: DE-GLAXOSMITHKLINE-DE2022EME072910

PATIENT
  Age: 66 Year
  Sex: Male

DRUGS (1)
  1. SOTROVIMAB [Suspect]
     Active Substance: SOTROVIMAB
     Indication: COVID-19
     Dosage: 500 MG
     Route: 042
     Dates: start: 20220430, end: 20220430

REACTIONS (3)
  - Death [Fatal]
  - Back pain [Unknown]
  - Vomiting [Unknown]

NARRATIVE: CASE EVENT DATE: 20220430
